FAERS Safety Report 23649177 (Version 2)
Quarter: 2024Q1

REPORT INFORMATION
  Report Type: Spontaneous
  Country: GB (occurrence: GB)
  Receive Date: 20240319
  Receipt Date: 20240325
  Transmission Date: 20240409
  Serious: Yes (Other)
  Sender: FDA-Public Use
  Company Number: None

PATIENT
  Age: 94 Year
  Sex: Male

DRUGS (2)
  1. DALTEPARIN SODIUM [Suspect]
     Active Substance: DALTEPARIN SODIUM
     Indication: Deep vein thrombosis
     Dosage: 15,00UNITS
     Dates: start: 20240301, end: 20240301
  2. APIXABAN [Suspect]
     Active Substance: APIXABAN
     Indication: Deep vein thrombosis
     Dosage: 10 MG, 2X/DAY
     Dates: start: 20240301

REACTIONS (2)
  - Inappropriate schedule of product administration [Unknown]
  - Cutaneous vasculitis [Unknown]

NARRATIVE: CASE EVENT DATE: 20240301
